FAERS Safety Report 7388109-4 (Version None)
Quarter: 2011Q2

REPORT INFORMATION
  Report Type: 
  Country: None (occurrence: None)
  Receive Date: 20110401
  Receipt Date: 20110318
  Transmission Date: 20111010
  Serious: Yes (Hospitalization)
  Sender: FDA-Public Use
  Company Number: US-ELI_LILLY_AND_COMPANY-US201008006771

PATIENT
  Sex: Female
  Weight: 76.19 kg

DRUGS (26)
  1. FORTEO [Suspect]
     Indication: OSTEOPOROSIS
     Dosage: 20 UG, DAILY (1/D)
     Dates: start: 20100706
  2. ELAVIL [Concomitant]
     Dosage: 20 MG, EACH EVENING
  3. TRAZODONE HCL [Concomitant]
     Dosage: 150 MG, EACH EVENING
  4. CENTRUM SILVER [Concomitant]
     Dosage: UNK, DAILY (1/D)
  5. NITRO                              /00003201/ [Concomitant]
     Dosage: 0.4 MG, OTHER
  6. METOPROLOL [Concomitant]
     Dosage: 12.5 MG, DAILY (1/D)
  7. NAMENDA [Concomitant]
     Dosage: 10 MG, 2/D
  8. SYNTHROID [Concomitant]
     Dosage: 125 UG, DAILY (1/D)
  9. LASIX [Concomitant]
     Dosage: 60 MG, DAILY (1/D)
  10. FORTEO [Suspect]
     Dosage: 20 UG, QD
     Dates: start: 20100813
  11. SULFAZINE [Concomitant]
     Dosage: 1000 MG, 2/D
  12. TOPROL-XL [Concomitant]
  13. ZOCOR [Concomitant]
     Dosage: 40 MG, EACH EVENING
  14. XANAX [Concomitant]
     Dosage: 2 MG, 3/D
  15. TRICOR [Concomitant]
     Dosage: 145 MG, EACH EVENING
  16. REGLAN [Concomitant]
     Dosage: 20 MG, 4/D
  17. K-DUR [Concomitant]
     Dosage: 10 MEQ, DAILY (1/D)
  18. CARAFATE [Concomitant]
     Dosage: 1 MG, 2/D
  19. ARICEPT [Concomitant]
     Dosage: 10 MG, DAILY (1/D)
  20. IRON [Concomitant]
     Dosage: 65 MG, DAILY (1/D)
  21. VICODIN [Concomitant]
     Dosage: UNK, OTHER
  22. BENTYL [Concomitant]
     Dosage: 20 UG, AS NEEDED
  23. FOLIC ACID [Concomitant]
     Dosage: 1 MG, DAILY (1/D)
  24. CALCIUM +VIT D [Concomitant]
     Dosage: 600 MG, 2/D
  25. STADOL [Concomitant]
     Dosage: UNK, AS NEEDED
  26. LEXAPRO [Concomitant]

REACTIONS (8)
  - URINARY TRACT INFECTION [None]
  - NAUSEA [None]
  - KIDNEY INFECTION [None]
  - VOMITING [None]
  - DIZZINESS [None]
  - HEADACHE [None]
  - MALAISE [None]
  - LUNG INFECTION [None]
